FAERS Safety Report 9416928 (Version 1)
Quarter: 2013Q3

REPORT INFORMATION
  Report Type: Spontaneous
  Country: US (occurrence: None)
  Receive Date: 20130722
  Receipt Date: 20130722
  Transmission Date: 20140515
  Serious: Yes (Hospitalization)
  Sender: FDA-Public Use
  Company Number: QSC-2013-0222

PATIENT
  Age: 49 Year
  Sex: Female

DRUGS (2)
  1. H.P. ACTHAR GEL [Suspect]
     Indication: DERMATOMYOSITIS
     Dates: start: 201306
  2. HYDROCORTISONE (HYDROCORTISONE) [Concomitant]

REACTIONS (6)
  - Coronary artery disease [None]
  - Tachycardia [None]
  - Fatigue [None]
  - Pain in extremity [None]
  - Pain in jaw [None]
  - Hypertension [None]
